FAERS Safety Report 5247926-7 (Version None)
Quarter: 2007Q1

REPORT INFORMATION
  Report Type: 
  Country: None (occurrence: None)
  Receive Date: 20070227
  Receipt Date: 20070215
  Transmission Date: 20070707
  Serious: Yes (Other)
  Sender: FDA-Public Use
  Company Number: PHBS2006ES06711

PATIENT
  Age: 75 Year
  Sex: Female

DRUGS (5)
  1. MELPHALAN [Concomitant]
     Route: 065
  2. PREDNISONE [Concomitant]
     Route: 065
  3. DEXAMETHASONE [Concomitant]
     Dosage: 20 MG/D FOR 4 DAYS
     Route: 065
  4. CYCLOPHOSPHAMIDE [Concomitant]
     Dosage: 1200 MG/MONTH
     Route: 065
     Dates: start: 20050701, end: 20060701
  5. ZOMETA [Suspect]
     Indication: MULTIPLE MYELOMA
     Dosage: 4 MG, MONTHLY
     Route: 042
     Dates: end: 20060301

REACTIONS (2)
  - OSTEONECROSIS [None]
  - TOOTH DISORDER [None]
